FAERS Safety Report 9177637 (Version 2)
Quarter: 2013Q2

REPORT INFORMATION
  Report Type: Spontaneous
  Country: US (occurrence: None)
  Receive Date: 20120531
  Receipt Date: 20130130
  Transmission Date: 20140414
  Serious: Yes (Hospitalization, Other)
  Sender: FDA-Public Use
  Company Number: US201201007453

PATIENT
  Sex: Female

DRUGS (16)
  1. BYETTA (EXENATIDE) PEN, DISPOSABLE [Suspect]
     Route: 058
  2. CARDURA (DOXAZOSIN MESILATE) [Concomitant]
  3. NEXIUM (ESOMEPRAZOLE MAGNESIUM) [Concomitant]
  4. ASPIRIN (ACETYLSALICYLIC ACID) [Concomitant]
  5. LIPITOR (ATORVASTATIN CALCIUM) [Concomitant]
  6. VITAMIN E [Concomitant]
  7. COREG (CARVEDILOL) [Concomitant]
  8. CLONIDINE HCL (CLONIDINE HYDROCHLORIDE) [Concomitant]
  9. SPIRONOLACTONE (SPIRONOLACTONE) [Concomitant]
  10. PROCARDIA (NIFEDIPINE) [Concomitant]
  11. LASIX (FUROSEMIDE) [Concomitant]
  12. ALDACTONE (SPIRONOLACTONE) [Concomitant]
  13. NOVOLIN (INSULIN HUMAN, INSULIN HUMAN INJECTION, ISOPHANE) [Concomitant]
  14. DIURIL (CHLOROTHIAZIDE) [Concomitant]
  15. CLONAZEPAM (CLONAZEPAM) [Concomitant]
  16. HYDRALAZINE HCL (HYDRALAZINE HYDROCHLORIDE) [Concomitant]

REACTIONS (1)
  - Renal failure [None]
